FAERS Safety Report 6452440-7 (Version None)
Quarter: 2009Q4

REPORT INFORMATION
  Report Type: 
  Country: None (occurrence: None)
  Receive Date: 20091123
  Receipt Date: 20091118
  Transmission Date: 20100525
  Serious: Yes (Hospitalization)
  Sender: FDA-Public Use
  Company Number: FR-GENENTECH-294544

PATIENT
  Sex: Male

DRUGS (10)
  1. BEVACIZUMAB [Suspect]
     Indication: COLORECTAL CANCER METASTATIC
     Dosage: 420 MG, UNK
     Dates: start: 20070321, end: 20070530
  2. IRINOTECAN HYDROCHLORIDE [Suspect]
     Indication: COLORECTAL CANCER METASTATIC
     Dosage: 520 MG, QD
     Dates: start: 20070321, end: 20070530
  3. FLUOROURACIL [Suspect]
     Indication: COLORECTAL CANCER METASTATIC
     Dosage: 800 MG, QD
     Dates: start: 20070321, end: 20070530
  4. FLUOROURACIL [Suspect]
     Dosage: 4800 MG, QD
     Dates: start: 20070321, end: 20070530
  5. FOLINIC ACID [Suspect]
     Indication: COLORECTAL CANCER METASTATIC
     Dosage: 800 MG, UNK
     Dates: start: 20070321, end: 20070530
  6. AMLOR [Concomitant]
     Indication: HYPERTENSION
     Dosage: 10 MG, QD
     Route: 048
     Dates: start: 20070505
  7. HYZAAR [Concomitant]
     Indication: HYPERTENSION
     Dosage: UNK
     Route: 048
     Dates: start: 20070505
  8. PRAZEPAM [Concomitant]
     Indication: ANXIETY
     Dosage: 20 UNK, UNK
     Route: 048
  9. DI-ANTALVIC [Concomitant]
     Indication: NECK PAIN
     Dosage: UNK
     Route: 048
  10. DI-ANTALVIC [Concomitant]
     Indication: MYALGIA

REACTIONS (1)
  - FEBRILE BONE MARROW APLASIA [None]
